FAERS Safety Report 7652564-2 (Version None)
Quarter: 2011Q3

REPORT INFORMATION
  Report Type: 
  Country: None (occurrence: None)
  Receive Date: 20110803
  Receipt Date: 20110728
  Transmission Date: 20111222
  Serious: Yes (Other)
  Sender: FDA-Public Use
  Company Number: US-BAYER-2011-066021

PATIENT
  Age: 60 Year
  Sex: Male

DRUGS (12)
  1. ESOMEPRAZOLE MAGNESIUM [Concomitant]
     Indication: GASTROOESOPHAGEAL REFLUX DISEASE
     Dosage: 40MG/KG, QD
     Route: 048
  2. ERGOCALCIFEROL [Concomitant]
     Indication: SUPPLEMENTATION THERAPY
     Dosage: 1 DF, QD
     Route: 048
  3. AMOXICILLIN [Concomitant]
  4. METRONIDAZOLE [Concomitant]
     Indication: CROHN'S DISEASE
     Dosage: HALF HOUR BEFORE MEALS
  5. VITAMINS NOS [Concomitant]
     Indication: SUPPLEMENTATION THERAPY
     Dosage: 1 DF, QD
     Route: 048
  6. HUMIRA [Suspect]
     Indication: CROHN'S DISEASE
     Dosage: 40MG IN 2 WEEKS
     Route: 058
     Dates: start: 20110325
  7. HYOMAX [Concomitant]
     Indication: CROHN'S DISEASE
     Dosage: HALF HOUR BEFORE MEALS
  8. CIPROFLOXACIN HCL [Suspect]
     Indication: DIVERTICULITIS
     Dosage: UNK
     Route: 048
     Dates: start: 20110601
  9. BUDESONIDE [Concomitant]
     Indication: CROHN'S DISEASE
     Dosage: 9 MG, BID
     Route: 048
  10. CHOLINE DERIVATIVES [Concomitant]
     Indication: BLOOD CHOLESTEROL INCREASED
     Dosage: 135 MG, QD
     Route: 048
  11. ACETYLSALICYLIC ACID SRT [Concomitant]
     Indication: PRODUCT USED FOR UNKNOWN INDICATION
     Dosage: 1 DF, QD
     Route: 048
  12. CIPROFLOXACIN [Suspect]
     Indication: DIVERTICULITIS
     Dosage: UNK
     Route: 042
     Dates: start: 20110601

REACTIONS (3)
  - CROHN'S DISEASE [None]
  - PYREXIA [None]
  - FEELING ABNORMAL [None]
